FAERS Safety Report 5034305-0 (Version None)
Quarter: 2006Q2

REPORT INFORMATION
  Report Type: 
  Country: None (occurrence: None)
  Receive Date: 20060626
  Receipt Date: 20060615
  Transmission Date: 20061013
  Serious: Yes (Death, Hospitalization)
  Sender: FDA-Public Use
  Company Number: US-JNJFOC-20060307451

PATIENT
  Sex: Female

DRUGS (8)
  1. REMICADE [Suspect]
     Dosage: HAD A ^DOUBLE DOSE^
     Route: 042
  2. REMICADE [Suspect]
     Indication: RHEUMATOID ARTHRITIS
     Route: 042
  3. ANTIHYPERTENSIVES [Concomitant]
     Indication: HYPERTENSION
  4. METHOTREXATE [Concomitant]
  5. DARVOCET [Concomitant]
  6. PROZAC [Concomitant]
  7. PROCRIT [Concomitant]
     Indication: ANAEMIA OF CHRONIC DISEASE
  8. ARANESP [Concomitant]
     Indication: ANAEMIA OF CHRONIC DISEASE

REACTIONS (10)
  - ANAEMIA [None]
  - DIARRHOEA [None]
  - HEMIPLEGIA [None]
  - MYALGIA [None]
  - NAUSEA [None]
  - PERIPHERAL EMBOLISM [None]
  - PNEUMONIA [None]
  - PNEUMOTHORAX [None]
  - SUBCUTANEOUS EMPHYSEMA [None]
  - VOMITING [None]
